FAERS Safety Report 17409669 (Version 8)
Quarter: 2020Q3

REPORT INFORMATION
  Report Type: Report from Study
  Country: US (occurrence: US)
  Receive Date: 20200212
  Receipt Date: 20200724
  Transmission Date: 20201102
  Serious: Yes (Hospitalization, Other)
  Sender: FDA-Public Use
  Company Number: US-ACTELION-A-NJ2020-200532

PATIENT
  Age: 1 Year
  Sex: Male
  Weight: 8.16 kg

DRUGS (26)
  1. TRACLEER [Suspect]
     Active Substance: BOSENTAN
     Dosage: 16 MG, BID
     Route: 048
  2. LEVALBUTEROL HCL [Concomitant]
     Active Substance: LEVALBUTEROL HYDROCHLORIDE
     Dosage: 3 MLS BY NEBULIZATION EVERY 6 HRS FOR 2 DAYS
     Route: 055
  3. LASIX + K [Concomitant]
     Active Substance: FUROSEMIDE\POTASSIUM CHLORIDE
     Dosage: 8 MG, BID
  4. TRACLEER [Suspect]
     Active Substance: BOSENTAN
     Dosage: 5 MG, BID
     Route: 048
  5. TRACLEER [Suspect]
     Active Substance: BOSENTAN
     Dosage: 32 MG, BID (1/2 TABLET)
     Route: 048
  6. REMODULIN [Suspect]
     Active Substance: TREPROSTINIL
     Indication: PRODUCT USED FOR UNKNOWN INDICATION
     Dosage: 19 NG/KG, PER MIN
     Route: 065
  7. SILDENAFIL CITRATE. [Suspect]
     Active Substance: SILDENAFIL CITRATE
     Indication: PRODUCT USED FOR UNKNOWN INDICATION
     Dosage: 10 MG, TID
     Route: 065
  8. CEPHALEXINE [Concomitant]
     Active Substance: CEPHALEXIN
     Dosage: 4.3ML EVERY 6 HRS VIA G?TUBE
     Route: 048
  9. MUCOMYST [Concomitant]
     Active Substance: ACETYLCYSTEINE
  10. VITAMIN C + ROSEHIP [Concomitant]
     Dosage: 125 MG, QD
  11. CALCIUM CARBONATE. [Concomitant]
     Active Substance: CALCIUM CARBONATE
     Dosage: 500 MG, BID
  12. CARBOXYMETHYLCELLULOSE [Concomitant]
     Active Substance: CARBOXYMETHYLCELLULOSE
     Dosage: 1 DROP IN BOTH EYES, TID
  13. DIURIL [CHLOROTHIAZIDE SODIUM] [Concomitant]
     Dosage: 1.7 ML (85 MG PER DOSE) EVERY 6 HRS
  14. FUROSEMIDE. [Concomitant]
     Active Substance: FUROSEMIDE
     Dosage: 0.8 ML (8MG PER DOSE) BID
  15. TRACLEER [Suspect]
     Active Substance: BOSENTAN
     Indication: PULMONARY ARTERIAL HYPERTENSION
     Dosage: 9.6 MG, BID
     Route: 048
  16. ASCORBIC ACID. [Concomitant]
     Active Substance: ASCORBIC ACID
     Dosage: 250 MG, QD
  17. HEPARIN [Concomitant]
     Active Substance: HEPARIN SODIUM
     Dosage: 1 ML EVERY HOURS AS NEEDED
  18. OXYGEN. [Concomitant]
     Active Substance: OXYGEN
  19. SODIUM CHLORIDE. [Concomitant]
     Active Substance: SODIUM CHLORIDE
     Dosage: 4 ML EVERY 8 HOURS
  20. DIURIL [CHLOROTHIAZIDE] [Concomitant]
     Dosage: 85 MG, Q6HRS
  21. POLYVISOL [ASCORBIC ACID;CYANOCOBALAMIN;ERGOCALCIFEROL;NICOTINAMIDE;PY [Concomitant]
     Dosage: 1 ML, QD
  22. KCL [Concomitant]
     Active Substance: POTASSIUM CHLORIDE
     Dosage: 13.3 MG, QD
  23. SILDENAFIL. [Suspect]
     Active Substance: SILDENAFIL
     Indication: PRODUCT USED FOR UNKNOWN INDICATION
     Dosage: 10 MG, TID
     Route: 065
  24. BACITRACIN. [Concomitant]
     Active Substance: BACITRACIN
     Dosage: 500 UNIT PER GRAM, BID
  25. POTASSIUM CHLORIDE. [Concomitant]
     Active Substance: POTASSIUM CHLORIDE
     Dosage: 20 MEQ/15 ML SOLUTION/ 10 ML BY G?TUBE ROUTE DAILY
  26. VITAMINS NOS [Concomitant]
     Active Substance: VITAMINS
     Dosage: 10 MG/ML DROP, 1ML BY G?TUBE DAILY

REACTIONS (27)
  - Tracheitis [Unknown]
  - Blood potassium increased [Unknown]
  - Viral upper respiratory tract infection [Unknown]
  - Dyspnoea [Unknown]
  - White blood cell count increased [Unknown]
  - Red blood cell count decreased [Unknown]
  - Haemoglobin decreased [Unknown]
  - Hepatoblastoma [Unknown]
  - Pyrexia [Unknown]
  - Respiratory rate increased [Unknown]
  - Cellulitis [Recovering/Resolving]
  - Lower respiratory tract infection [Unknown]
  - Increased bronchial secretion [Unknown]
  - Respiratory distress [Recovering/Resolving]
  - Pulmonary oedema [Unknown]
  - Cyanosis [Unknown]
  - Protein total decreased [Unknown]
  - Hypoxia [Unknown]
  - Seizure [Unknown]
  - Heart rate increased [Unknown]
  - Hypopnoea [Unknown]
  - Slow response to stimuli [Unknown]
  - Blood creatinine decreased [Unknown]
  - Blood calcium abnormal [Unknown]
  - Hepatocellular carcinoma [Unknown]
  - Haematocrit decreased [Unknown]
  - Mean cell volume increased [Unknown]

NARRATIVE: CASE EVENT DATE: 202001
